FAERS Safety Report 5152129-0 (Version None)
Quarter: 2006Q4

REPORT INFORMATION
  Report Type: 
  Country: None (occurrence: None)
  Receive Date: 20061116
  Receipt Date: 20060327
  Transmission Date: 20070319
  Serious: Yes (Hospitalization)
  Sender: FDA-Public Use
  Company Number: PHHO2006FR04954

PATIENT
  Age: 49 Year
  Sex: Female
  Weight: 50 kg

DRUGS (3)
  1. CERTICAN [Suspect]
     Indication: RENAL TRANSPLANT
     Dosage: 2 MG/DAILY
     Route: 048
     Dates: start: 20051125
  2. NEORAL [Suspect]
     Indication: RENAL TRANSPLANT
     Dosage: 150 MG DAILY DOSE
     Route: 048
     Dates: start: 20051124
  3. NEORAL [Suspect]
     Dosage: 70 MG DAILY
     Route: 048
     Dates: start: 20060316

REACTIONS (5)
  - BLOOD CREATININE INCREASED [None]
  - DIARRHOEA [None]
  - DRUG INTERACTION [None]
  - LUNG DISORDER [None]
  - NEPHROPATHY TOXIC [None]
